FAERS Safety Report 4964712-3 (Version None)
Quarter: 2006Q2

REPORT INFORMATION
  Report Type: 
  Country: None (occurrence: None)
  Receive Date: 20060406
  Receipt Date: 20050317
  Transmission Date: 20061013
  Serious: Yes (Hospitalization, Other)
  Sender: FDA-Public Use
  Company Number: US-MERCK-0503USA03423

PATIENT
  Age: 57 Year
  Sex: Female
  Weight: 80 kg

DRUGS (23)
  1. VIOXX [Suspect]
     Indication: RHEUMATOID ARTHRITIS
     Route: 048
     Dates: start: 19990101, end: 20040701
  2. DIPYRIDAMOLE [Concomitant]
     Route: 065
  3. HYDROCODONE BITARTRATE [Concomitant]
     Route: 065
  4. LEVOXYL [Concomitant]
     Route: 065
  5. DOCUSATE SODIUM [Concomitant]
     Route: 065
  6. LIPITOR [Concomitant]
     Route: 065
  7. FOLIC ACID [Concomitant]
     Route: 065
  8. SYNTHROID [Concomitant]
     Route: 065
  9. GLUCOPHAGE [Concomitant]
     Route: 065
  10. METOCLOPRAMIDE [Concomitant]
     Route: 065
  11. PREVACID [Concomitant]
     Route: 065
  12. NORVASC [Concomitant]
     Route: 065
  13. PSEUDOEPHEDRINE [Concomitant]
     Route: 065
  14. NICODERM [Concomitant]
     Route: 065
  15. CEPHALEXIN [Concomitant]
     Route: 065
  16. PLAVIX [Concomitant]
     Route: 065
  17. LEVAQUIN [Concomitant]
     Route: 065
  18. FOSAMAX [Concomitant]
     Route: 048
  19. ACETAMINOPHEN AND PROPOXYPHENE NAPSYLATE [Concomitant]
     Route: 065
  20. CALCIUM CARBONATE [Concomitant]
     Route: 065
  21. MACROBID [Concomitant]
     Route: 065
  22. DITROPAN [Concomitant]
     Route: 065
  23. ASPIRIN [Concomitant]
     Route: 065

REACTIONS (29)
  - ACUTE MYOCARDIAL INFARCTION [None]
  - ADRENAL MASS [None]
  - ARTERIOSCLEROSIS [None]
  - ATELECTASIS [None]
  - BILE DUCT STONE [None]
  - CARDIAC FAILURE CONGESTIVE [None]
  - CEREBROVASCULAR ACCIDENT [None]
  - CHEST PAIN [None]
  - CHOLANGITIS [None]
  - CHRONIC OBSTRUCTIVE PULMONARY DISEASE [None]
  - CONTUSION [None]
  - CORONARY ARTERY DISEASE [None]
  - FALL [None]
  - FEMUR FRACTURE [None]
  - GASTRITIS EROSIVE [None]
  - HYPERLIPIDAEMIA [None]
  - HYPERTENSION [None]
  - IMPLANT SITE EFFUSION [None]
  - ISCHAEMIC STROKE [None]
  - LABYRINTHITIS [None]
  - LUNG DISORDER [None]
  - MUSCULOSKELETAL CHEST PAIN [None]
  - OEDEMA PERIPHERAL [None]
  - RIB FRACTURE [None]
  - ROAD TRAFFIC ACCIDENT [None]
  - SKIN LACERATION [None]
  - SLEEP APNOEA SYNDROME [None]
  - TRANSIENT ISCHAEMIC ATTACK [None]
  - URINARY TRACT INFECTION [None]
